FAERS Safety Report 15968488 (Version 1)
Quarter: 2019Q1

REPORT INFORMATION
  Report Type: Report from Study
  Country: US (occurrence: US)
  Receive Date: 20190215
  Receipt Date: 20190215
  Transmission Date: 20190418
  Serious: Yes (Other)
  Sender: FDA-Public Use
  Company Number: US-GILEAD-2019-0390610

PATIENT
  Age: 80 Year
  Sex: Male

DRUGS (8)
  1. LASIX [Concomitant]
     Active Substance: FUROSEMIDE
  2. ALLOPURINOL. [Concomitant]
     Active Substance: ALLOPURINOL
  3. ASPIRIN [ACETYLSALICYLIC ACID] [Concomitant]
     Active Substance: ASPIRIN
  4. IPRATROPIUM [Concomitant]
     Active Substance: IPRATROPIUM
  5. PREDNISONE. [Concomitant]
     Active Substance: PREDNISONE
  6. GLYCOPYRROLATE [GLYCOPYRRONIUM BROMIDE] [Concomitant]
  7. IDELALISIB [Suspect]
     Active Substance: IDELALISIB
     Indication: CHRONIC LYMPHOCYTIC LEUKAEMIA
     Dosage: 1 DF, BID
     Route: 048
     Dates: start: 20170107
  8. ELIQUIS [Concomitant]
     Active Substance: APIXABAN

REACTIONS (5)
  - Peripheral swelling [Unknown]
  - Dry skin [Unknown]
  - Cellulitis [Unknown]
  - Pruritus generalised [Unknown]
  - Skin cancer [Unknown]

NARRATIVE: CASE EVENT DATE: 201901
